FAERS Safety Report 21934510 (Version 1)
Quarter: 2023Q1

REPORT INFORMATION
  Report Type: Spontaneous
  Country: FR (occurrence: None)
  Receive Date: 20230201
  Receipt Date: 20230201
  Transmission Date: 20230418
  Serious: Yes (Death)
  Sender: FDA-Public Use
  Company Number: FR-ROCHE-3274188

PATIENT
  Age: 86 Year
  Sex: Male

DRUGS (3)
  1. OBINUTUZUMAB [Suspect]
     Active Substance: OBINUTUZUMAB
     Indication: Leukaemia
     Route: 042
     Dates: start: 20221121
  2. OBINUTUZUMAB [Suspect]
     Active Substance: OBINUTUZUMAB
     Route: 042
     Dates: start: 20221122
  3. VENETOCLAX [Concomitant]
     Active Substance: VENETOCLAX

REACTIONS (3)
  - Respiratory distress [Fatal]
  - Pyrexia [Unknown]
  - Off label use [Unknown]

NARRATIVE: CASE EVENT DATE: 20221122
